FAERS Safety Report 8663835 (Version 2)
Quarter: 2014Q1

REPORT INFORMATION
  Report Type: Spontaneous
  Country: US (occurrence: US)
  Receive Date: 20120713
  Receipt Date: 20140130
  Transmission Date: 20141002
  Serious: Yes (Other)
  Sender: FDA-Public Use
  Company Number: US-PFIZER INC-2012163751

PATIENT
  Age: 43 Year
  Sex: Female
  Weight: 69.39 kg

DRUGS (4)
  1. DIFLUCAN [Suspect]
     Indication: FUNGAL INFECTION
     Dosage: 1 DF, UNK
     Route: 065
  2. PREVACID [Interacting]
     Indication: DYSPEPSIA
     Dosage: 15 MG, 1X/DAY
     Route: 048
     Dates: start: 201201
  3. ESTRACE ^BRISTOL-MYERS SQUIBB^ [Interacting]
     Dosage: UNK
  4. CLINDAMYCIN [Concomitant]
     Dosage: UNK

REACTIONS (14)
  - Fungal infection [Recovered/Resolved]
  - Drug interaction [Recovering/Resolving]
  - Mouth ulceration [Recovered/Resolved]
  - Tonsillar cyst [Not Recovered/Not Resolved]
  - Gastric disorder [Recovered/Resolved]
  - Weight decreased [Recovered/Resolved]
  - Drug ineffective for unapproved indication [Unknown]
  - Malaise [Recovering/Resolving]
  - Aphagia [Unknown]
  - Mobility decreased [Unknown]
  - Decreased appetite [Recovering/Resolving]
  - Incorrect drug administration duration [Unknown]
  - Treatment noncompliance [Unknown]
  - Wrong technique in drug usage process [Unknown]
